FAERS Safety Report 5910738-2 (Version None)
Quarter: 2008Q4

REPORT INFORMATION
  Report Type: 
  Country: None (occurrence: None)
  Receive Date: 20081007
  Receipt Date: 20080408
  Transmission Date: 20090506
  Serious: No
  Sender: FDA-Public Use
  Company Number: US-ASTRAZENECA-2008UW07103

PATIENT
  Age: 79 Year
  Sex: Female

DRUGS (4)
  1. ARIMIDEX [Suspect]
     Indication: BREAST CANCER
     Route: 048
     Dates: start: 20070101, end: 20070101
  2. SYNTHROID [Concomitant]
  3. CELEBREX [Concomitant]
  4. DIAZIDE [Concomitant]

REACTIONS (1)
  - CORRECTIVE LENS USER [None]
